FAERS Safety Report 5905368-2 (Version None)
Quarter: 2008Q4

REPORT INFORMATION
  Report Type: 
  Country: None (occurrence: None)
  Receive Date: 20081001
  Receipt Date: 20080922
  Transmission Date: 20090506
  Serious: Yes (Hospitalization)
  Sender: FDA-Public Use
  Company Number: IE-PFIZER INC-2008080036

PATIENT
  Age: 60 Year
  Sex: Female

DRUGS (7)
  1. LIPITOR [Suspect]
     Route: 048
  2. METFORMIN HCL [Concomitant]
  3. RAMIPRIL [Concomitant]
  4. ACETYLSALICYLIC ACID SRT [Concomitant]
  5. DIAMICRON [Concomitant]
  6. AZITHROMYCIN [Concomitant]
     Route: 042
     Dates: start: 20080805
  7. FUSIDIC ACID [Concomitant]
     Dates: start: 20080805

REACTIONS (2)
  - OSTEOMYELITIS [None]
  - RHABDOMYOLYSIS [None]
